FAERS Safety Report 15609638 (Version 3)
Quarter: 2019Q2

REPORT INFORMATION
  Report Type: Report from Study
  Country: RO (occurrence: RO)
  Receive Date: 20181113
  Receipt Date: 20190425
  Transmission Date: 20190711
  Serious: Yes (Death, Life-Threatening, Hospitalization, Other)
  Sender: FDA-Public Use
  Company Number: RO-BRISTOL-MYERS SQUIBB COMPANY-BMS-2018-104150

PATIENT
  Age: 73 Year
  Sex: Female

DRUGS (2)
  1. APIXABAN [Suspect]
     Active Substance: APIXABAN
     Indication: PRODUCT USED FOR UNKNOWN INDICATION
     Dosage: 2.5 MILLIGRAM, PER DAY
     Route: 048
     Dates: start: 201701
  2. APIXABAN [Suspect]
     Active Substance: APIXABAN
     Indication: RESPIRATORY DISORDER
     Dosage: UNK
     Route: 065
     Dates: start: 201501, end: 201501

REACTIONS (16)
  - Vitreous floaters [Unknown]
  - Cardio-respiratory arrest [Fatal]
  - Coma [Unknown]
  - Loss of consciousness [Unknown]
  - Drug intolerance [Unknown]
  - Somnolence [Unknown]
  - Carbon dioxide increased [Unknown]
  - Product dose omission [Unknown]
  - Product use in unapproved indication [Unknown]
  - Respiratory disorder [Fatal]
  - Hallucination [Unknown]
  - Oxygen saturation decreased [Unknown]
  - Inappropriate affect [Unknown]
  - Feeling abnormal [Unknown]
  - Crying [Unknown]
  - Headache [Unknown]

NARRATIVE: CASE EVENT DATE: 201501
